FAERS Safety Report 23820440 (Version 1)
Quarter: 2024Q2

REPORT INFORMATION
  Report Type: Spontaneous
  Country: US (occurrence: None)
  Receive Date: 20240503
  Receipt Date: 20240503
  Transmission Date: 20240716
  Serious: Yes (Death)
  Sender: FDA-Public Use
  Company Number: None

PATIENT
  Age: 65 Year
  Sex: Male
  Weight: 97.5 kg

DRUGS (1)
  1. PADCEV [Suspect]
     Active Substance: ENFORTUMAB VEDOTIN-EJFV
     Indication: Bladder cancer
     Dosage: 120 MG DAY 1 AND 8 INTRAVENOUS DRIP
     Route: 041
     Dates: start: 20240416, end: 20240423

REACTIONS (6)
  - Asthenia [None]
  - Blood sodium abnormal [None]
  - Diarrhoea [None]
  - Hypophagia [None]
  - Fatigue [None]
  - Diabetic ketoacidosis [None]

NARRATIVE: CASE EVENT DATE: 20240423
